FAERS Safety Report 8791169 (Version 1)
Quarter: 2012Q4

REPORT INFORMATION
  Report Type: Spontaneous
  Country: US (occurrence: None)
  Receive Date: 20120907
  Receipt Date: 20120907
  Transmission Date: 20130627
  Serious: Yes (Other)
  Sender: FDA-Public Use
  Company Number: DSA_59329_2012

PATIENT

DRUGS (3)
  1. FLUOROURACIL [Suspect]
     Indication: HEAD AND NECK CANCER
     Dosage: 1000 mg/m2 daily Intravenous (not otherwise specified)
     Route: 042
  2. CISPLATIN [Suspect]
     Dosage: 20 mg/m2 daily Intravenous (not otherwise specified)
     Route: 042
  3. THERAPEUTIC RADIOPHARMACEUTICALS [Suspect]

REACTIONS (1)
  - Skin toxicity [None]
